FAERS Safety Report 9415831 (Version 2)
Quarter: 2013Q3

REPORT INFORMATION
  Report Type: Report from Study
  Country: NL (occurrence: NL)
  Receive Date: 20130724
  Receipt Date: 20130829
  Transmission Date: 20140515
  Serious: Yes (Hospitalization)
  Sender: FDA-Public Use
  Company Number: NL-ROCHE-1249861

PATIENT
  Age: 41 Year
  Sex: Male
  Weight: 110 kg

DRUGS (9)
  1. RITUXIMAB [Suspect]
     Indication: MALIGNANT LYMPHOID NEOPLASM
     Route: 042
     Dates: start: 20121025, end: 20121025
  2. METHOTREXATE [Suspect]
     Indication: MALIGNANT LYMPHOID NEOPLASM
     Route: 042
     Dates: start: 20121026, end: 20121026
  3. TENIPOSIDE [Suspect]
     Indication: MALIGNANT LYMPHOID NEOPLASM
     Route: 042
     Dates: start: 20121027, end: 20121027
  4. CARMUSTINE [Suspect]
     Indication: MALIGNANT LYMPHOID NEOPLASM
     Route: 065
  5. PREDNISOLONE [Suspect]
     Indication: MALIGNANT LYMPHOID NEOPLASM
     Route: 048
     Dates: start: 20121026, end: 20121027
  6. LEUCOVORIN [Concomitant]
     Route: 042
     Dates: start: 20121027, end: 20121027
  7. CIPROFLOXACINE [Concomitant]
     Route: 048
     Dates: start: 20121024, end: 20121027
  8. FLUCONAZOLE [Concomitant]
     Route: 048
     Dates: start: 20121024, end: 20121027
  9. VALACYCLOVIR [Concomitant]
     Indication: ANTIVIRAL PROPHYLAXIS
     Route: 048
     Dates: start: 20121024, end: 20121027

REACTIONS (1)
  - Renal failure acute [Recovered/Resolved]
